FAERS Safety Report 9328168 (Version 2)
Quarter: 2013Q3

REPORT INFORMATION
  Report Type: Spontaneous
  Country: US (occurrence: US)
  Receive Date: 20130604
  Receipt Date: 20130807
  Transmission Date: 20140515
  Serious: No
  Sender: FDA-Public Use
  Company Number: US-AMGEN-USASP2013035674

PATIENT
  Age: 61 Year
  Sex: Female

DRUGS (2)
  1. ENBREL [Suspect]
     Indication: RHEUMATOID ARTHRITIS
     Dosage: 50 MG, QWK
     Dates: start: 20060515
  2. METHOTREXATE [Concomitant]
     Dosage: 20 UNK, QWK

REACTIONS (2)
  - Lower extremity mass [Recovered/Resolved]
  - Erythema [Not Recovered/Not Resolved]
